FAERS Safety Report 19352819 (Version 1)
Quarter: 2021Q2

REPORT INFORMATION
  Report Type: Spontaneous
  Country: US (occurrence: US)
  Receive Date: 20210531
  Receipt Date: 20210531
  Transmission Date: 20210717
  Serious: No
  Sender: FDA-Public Use
  Company Number: US-PFIZER INC-2017271295

PATIENT
  Age: 53 Year
  Sex: Female
  Weight: 50.3 kg

DRUGS (11)
  1. ABILIFY [Concomitant]
     Active Substance: ARIPIPRAZOLE
     Dosage: 5 MG, DAILY
     Route: 048
  2. SYNTHROID [Concomitant]
     Active Substance: LEVOTHYROXINE SODIUM
     Dosage: .025 MG, DAILY
     Route: 048
  3. LYRICA [Suspect]
     Active Substance: PREGABALIN
     Indication: ADENOCARCINOMA
  4. DESYREL [Concomitant]
     Active Substance: TRAZODONE HYDROCHLORIDE
     Dosage: 150 MG, DAILY (BEDTIME)
     Route: 048
  5. VALIUM [Concomitant]
     Active Substance: DIAZEPAM
     Dosage: 5 MG, AS NEEDED (Q8H PRN)
     Route: 048
  6. MEVACOR [Concomitant]
     Active Substance: LOVASTATIN
     Dosage: 20 MG, 1X/DAY(Q DN)
     Route: 048
  7. PRISTIQ EXTENDED?RELEASE [Concomitant]
     Active Substance: DESVENLAFAXINE SUCCINATE
     Dosage: 50 MG, DAILY
     Route: 048
  8. LYRICA [Suspect]
     Active Substance: PREGABALIN
     Indication: FIBROMYALGIA
     Dosage: 150 MG, 3X/DAY
     Route: 048
  9. MOTRIN [Concomitant]
     Active Substance: IBUPROFEN
     Dosage: 400 MG, 3X/DAY(Q8H)
     Route: 048
  10. LIDODERM [Concomitant]
     Active Substance: LIDOCAINE
     Dosage: 1 DF, DAILY(1 EACH)
     Route: 061
  11. ROBAXIN [Concomitant]
     Active Substance: METHOCARBAMOL
     Dosage: 1000 MG, 3X/DAY
     Route: 048

REACTIONS (1)
  - Malaise [Unknown]
